FAERS Safety Report 10013379 (Version 3)
Quarter: 2014Q2

REPORT INFORMATION
  Report Type: Report from Study
  Country: US (occurrence: US)
  Receive Date: 20140314
  Receipt Date: 20140512
  Transmission Date: 20141212
  Serious: Yes (Hospitalization)
  Sender: FDA-Public Use
  Company Number: US-ALEXION PHARMACEUTICALS INC.-A201400787

PATIENT
  Sex: 0

DRUGS (5)
  1. SOLIRIS [Suspect]
     Indication: HAEMOLYTIC URAEMIC SYNDROME
     Dosage: 1200 MG, Q2W
     Route: 042
     Dates: start: 20140110
  2. AMPICILLIN [Concomitant]
     Indication: PRODUCT USED FOR UNKNOWN INDICATION
     Dosage: Q4H X 2 WEEKS
     Route: 042
     Dates: start: 20140120
  3. CEFTRIAXONE [Concomitant]
     Indication: URINARY TRACT INFECTION
     Dosage: UNK
     Route: 065
     Dates: start: 20140120
  4. VANCOMYCIN [Concomitant]
     Indication: ESCHERICHIA URINARY TRACT INFECTION
     Dosage: UNK
     Route: 065
     Dates: start: 20140120
  5. LANTUS [Concomitant]
     Indication: HYPERGLYCAEMIA
     Dosage: 50 UNITS, QD
     Dates: start: 20140122

REACTIONS (2)
  - Catheter site infection [Recovered/Resolved]
  - Poor venous access [Unknown]
